FAERS Safety Report 4383258-7 (Version None)
Quarter: 2004Q2

REPORT INFORMATION
  Report Type: 
  Country: None (occurrence: None)
  Receive Date: 20040622
  Receipt Date: 20040622
  Transmission Date: 20050107
  Serious: Yes (Hospitalization)
  Sender: FDA-Public Use
  Company Number: None

PATIENT
  Age: 50 Year
  Sex: Male
  Weight: 61.3 kg

DRUGS (14)
  1. TENOFOVIR 300 MG [Suspect]
     Indication: HIV INFECTION
     Dosage: ONE QD
     Dates: start: 20031007
  2. ABACAVIR SULFATE [Concomitant]
  3. DIDANOSINE [Concomitant]
  4. SULFAMETHOXAZOLE AND TRIMETHOPRIM DOUBLE STRENGTH [Concomitant]
  5. LOPINAVIR/RITONAVIR [Concomitant]
  6. METOCLOPRAMIDE HCL [Concomitant]
  7. BUPROPION (WELLBUTRIN SR) [Concomitant]
  8. SERTRALINE HCL [Concomitant]
  9. ABACAVIR SULFATE [Concomitant]
  10. ATAZANAVIR S04 [Concomitant]
  11. DIDANOSINE [Concomitant]
  12. LOPINAVIR/RITONAVIR [Concomitant]
  13. SERTALINE HCL [Concomitant]
  14. EFAVIRENZ [Concomitant]

REACTIONS (5)
  - DIALYSIS [None]
  - FANCONI SYNDROME ACQUIRED [None]
  - HYPERBILIRUBINAEMIA [None]
  - METABOLIC ACIDOSIS [None]
  - RENAL FAILURE ACUTE [None]
